FAERS Safety Report 8256436-4 (Version None)
Quarter: 2012Q1

REPORT INFORMATION
  Report Type: 
  Country: None (occurrence: None)
  Receive Date: 20120330
  Receipt Date: 20120319
  Transmission Date: 20120608
  Serious: Yes (Other)
  Sender: FDA-Public Use
  Company Number: 2012MA003620

PATIENT
  Age: 6 Year
  Sex: Male

DRUGS (5)
  1. FLUDARABINE PHOSPHATE [Suspect]
     Indication: DRUG THERAPY
     Dosage: 180 MG/M**2
  2. CYCLOPHOSPHAMIDE [Concomitant]
  3. CYCLOSPORINE [Concomitant]
  4. METHOTREXATE [Suspect]
     Indication: PROPHYLAXIS AGAINST GRAFT VERSUS HOST DISEASE
     Dosage: 1.15 MG/M2
  5. ANTI-THYMOCYTE GLOBULIN NOS [Concomitant]

REACTIONS (3)
  - CYTOMEGALOVIRUS INFECTION [None]
  - CYSTITIS VIRAL [None]
  - HAEMOLYTIC ANAEMIA [None]
